FAERS Safety Report 7408144-7 (Version None)
Quarter: 2011Q2

REPORT INFORMATION
  Report Type: 
  Country: None (occurrence: None)
  Receive Date: 20110412
  Receipt Date: 20110330
  Transmission Date: 20111010
  Serious: No
  Sender: FDA-Public Use
  Company Number: US-JNJFOC-20110401146

PATIENT
  Sex: Male
  Weight: 122.47 kg

DRUGS (5)
  1. FENTANYL-100 [Suspect]
     Indication: HEADACHE
     Route: 062
  2. DURAGESIC [Suspect]
     Indication: HEADACHE
     Route: 062
  3. FENTANYL-100 [Suspect]
     Indication: NECK PAIN
     Route: 062
  4. OXYCODONE [Concomitant]
     Indication: BREAKTHROUGH PAIN
     Dosage: 5/325 MG TABLET AS NEEDED
     Route: 048
  5. DURAGESIC [Suspect]
     Indication: NECK PAIN
     Route: 062

REACTIONS (3)
  - INCORRECT DRUG ADMINISTRATION RATE [None]
  - WRONG TECHNIQUE IN DRUG USAGE PROCESS [None]
  - PRODUCT QUALITY ISSUE [None]
